FAERS Safety Report 15788817 (Version 1)
Quarter: 2019Q1

REPORT INFORMATION
  Report Type: Other
  Country: IR (occurrence: IR)
  Receive Date: 20190104
  Receipt Date: 20190104
  Transmission Date: 20190417
  Serious: Yes (Hospitalization)
  Sender: FDA-Public Use
  Company Number: IR-ACTELION-A-CH2018-184282

PATIENT
  Age: 53 Year
  Sex: Female

DRUGS (7)
  1. CARVEDILOL. [Concomitant]
     Active Substance: CARVEDILOL
  2. LEVOTHYROXINE. [Concomitant]
     Active Substance: LEVOTHYROXINE
     Indication: HYPOTHYROIDISM
  3. LOSARTAN. [Concomitant]
     Active Substance: LOSARTAN
  4. SILDENAFIL. [Concomitant]
     Active Substance: SILDENAFIL
  5. DIGOXIN. [Concomitant]
     Active Substance: DIGOXIN
  6. LASIX [Concomitant]
     Active Substance: FUROSEMIDE
  7. BOSENTAN. [Suspect]
     Active Substance: BOSENTAN
     Indication: PULMONARY HYPERTENSION
     Route: 048

REACTIONS (18)
  - Cardiac pacemaker insertion [Recovering/Resolving]
  - Pulmonary hypertension [Recovering/Resolving]
  - Loss of consciousness [Recovering/Resolving]
  - Atrioventricular block [Recovering/Resolving]
  - Haemoptysis [Recovering/Resolving]
  - Dyspnoea [Recovering/Resolving]
  - Respiratory distress [Recovering/Resolving]
  - Inferior vena cava dilatation [Recovering/Resolving]
  - Pyrexia [Recovering/Resolving]
  - Arteriovenous fistula operation [Recovered/Resolved]
  - Mitral valve incompetence [Recovering/Resolving]
  - Tricuspid valve incompetence [Recovering/Resolving]
  - Acute pulmonary oedema [Recovering/Resolving]
  - Syncope [Recovering/Resolving]
  - Cold sweat [Recovering/Resolving]
  - Chest discomfort [Recovering/Resolving]
  - Ventricular enlargement [Recovering/Resolving]
  - Pericardial effusion [Recovering/Resolving]
